FAERS Safety Report 6556242-2 (Version None)
Quarter: 2010Q1

REPORT INFORMATION
  Report Type: 
  Country: None (occurrence: None)
  Receive Date: 20100128
  Receipt Date: 20090814
  Transmission Date: 20100710
  Serious: No
  Sender: FDA-Public Use
  Company Number: US-TEVA-206368USA

PATIENT
  Sex: Female
  Weight: 49.9 kg

DRUGS (3)
  1. COPAXONE [Suspect]
     Indication: MULTIPLE SCLEROSIS
     Route: 058
     Dates: start: 20080301, end: 20090701
  2. ASPIRIN [Concomitant]
  3. ADVIL [Concomitant]

REACTIONS (3)
  - LIP SWELLING [None]
  - PRURITUS [None]
  - URTICARIA [None]
